FAERS Safety Report 4294189-5 (Version None)
Quarter: 2004Q1

REPORT INFORMATION
  Report Type: 
  Country: None (occurrence: None)
  Receive Date: 20040211
  Receipt Date: 20040211
  Transmission Date: 20041129
  Serious: Yes (Death)
  Sender: FDA-Public Use
  Company Number: None

PATIENT
  Sex: Male
  Weight: 68.9467 kg

DRUGS (14)
  1. CAMPTOSAR [Suspect]
     Indication: OROPHARYNGEAL CANCER STAGE UNSPECIFIED
     Dosage: 60 MG/M2 IV D-1 AND 8
     Route: 042
     Dates: start: 20031020
  2. CAMPTOSAR [Suspect]
     Indication: OROPHARYNGEAL CANCER STAGE UNSPECIFIED
     Dosage: 60 MG/M2 IV D-1 AND 8
     Route: 042
     Dates: start: 20031027
  3. CAMPTOSAR [Suspect]
     Indication: OROPHARYNGEAL CANCER STAGE UNSPECIFIED
     Dosage: 60 MG/M2 IV D-1 AND 8
     Route: 042
     Dates: start: 20031110
  4. CAMPTOSAR [Suspect]
     Indication: OROPHARYNGEAL CANCER STAGE UNSPECIFIED
     Dosage: 60 MG/M2 IV D-1 AND 8
     Route: 042
     Dates: start: 20031117
  5. TAXOTERE [Suspect]
     Dosage: 35 MG/M2 IV D 1 AND 8
     Route: 042
     Dates: start: 20031020
  6. TAXOTERE [Suspect]
     Dosage: 35 MG/M2 IV D 1 AND 8
     Route: 042
     Dates: start: 20031027
  7. TAXOTERE [Suspect]
     Dosage: 35 MG/M2 IV D 1 AND 8
     Route: 042
     Dates: start: 20031110
  8. TAXOTERE [Suspect]
     Dosage: 35 MG/M2 IV D 1 AND 8
     Route: 042
     Dates: start: 20031117
  9. SYNTHROID [Concomitant]
  10. NEURONTIN [Concomitant]
  11. FENTANYL [Concomitant]
  12. ZOFRAN [Concomitant]
  13. MOTRIN [Concomitant]
  14. IMODIUM [Concomitant]

REACTIONS (4)
  - ARTERIAL RUPTURE [None]
  - CAROTID ARTERY DISEASE [None]
  - EPISTAXIS [None]
  - PHARYNGEAL HAEMORRHAGE [None]
